FAERS Safety Report 10471076 (Version 2)
Quarter: 2014Q3

REPORT INFORMATION
  Report Type: Spontaneous
  Country: KR (occurrence: KR)
  Receive Date: 20140923
  Receipt Date: 20140923
  Transmission Date: 20150326
  Serious: Yes (Hospitalization, Other)
  Sender: FDA-Public Use
  Company Number: PHHY2014KR030460

PATIENT
  Age: 58 Year
  Sex: Male
  Weight: 59 kg

DRUGS (1)
  1. INDACATEROL [Suspect]
     Active Substance: INDACATEROL
     Indication: CHRONIC OBSTRUCTIVE PULMONARY DISEASE
     Dosage: 150 UG, UNK
     Route: 055
     Dates: start: 20130520, end: 20130818

REACTIONS (3)
  - Granuloma [Unknown]
  - Lymphadenopathy [Unknown]
  - Lung adenocarcinoma [Not Recovered/Not Resolved]

NARRATIVE: CASE EVENT DATE: 20130922
